FAERS Safety Report 8495047-2 (Version None)
Quarter: 2012Q3

REPORT INFORMATION
  Report Type: 
  Country: None (occurrence: None)
  Receive Date: 20120709
  Receipt Date: 20120703
  Transmission Date: 20120928
  Serious: Yes (Other)
  Sender: FDA-Public Use
  Company Number: PHHY2011MX83562

PATIENT
  Sex: Female

DRUGS (2)
  1. DIOVAN [Suspect]
     Indication: HYPERTENSION
     Dosage: 0.5 DF PER DAY (80 MG)
     Dates: start: 20100401
  2. JANUMET [Concomitant]
     Indication: DIABETES MELLITUS

REACTIONS (4)
  - HYPOAESTHESIA [None]
  - WRONG TECHNIQUE IN DRUG USAGE PROCESS [None]
  - FRACTURE [None]
  - SOMNOLENCE [None]
